FAERS Safety Report 6959376-3 (Version None)
Quarter: 2010Q3

REPORT INFORMATION
  Report Type: 
  Country: None (occurrence: None)
  Receive Date: 20100831
  Receipt Date: 20100831
  Transmission Date: 20110219
  Serious: Yes (Hospitalization)
  Sender: FDA-Public Use
  Company Number: None

PATIENT
  Age: 16 Year
  Sex: Male
  Weight: 65.7716 kg

DRUGS (1)
  1. CLINDAMYCIN [Suspect]
     Indication: INFECTION
     Dosage: 2 CAPSULES 3X DAY PO
     Route: 048
     Dates: start: 20100828, end: 20100829

REACTIONS (3)
  - CHEST PAIN [None]
  - CONVULSION [None]
  - DYSPNOEA [None]
